FAERS Safety Report 21453032 (Version 2)
Quarter: 2022Q4

REPORT INFORMATION
  Report Type: Report from Study
  Country: MX (occurrence: None)
  Receive Date: 20221013
  Receipt Date: 20221020
  Transmission Date: 20230112
  Serious: Yes (Life-Threatening, Hospitalization, Other)
  Sender: FDA-Public Use
  Company Number: MX-ROCHE-3166278

PATIENT
  Age: 49 Year
  Sex: Female
  Weight: 89.2 kg

DRUGS (13)
  1. PERTUZUMAB\TRASTUZUMAB [Suspect]
     Active Substance: PERTUZUMAB\TRASTUZUMAB
     Indication: HER2 positive breast cancer
     Dosage: DOSE 1200 MG/600 MG, ON 25/JUL/2022 START DATE OF MOST RECENT DOSE OF PERTUZUMAB/TRASTUZUMAB  PRIOR
     Route: 058
     Dates: start: 20220727
  2. DOCETAXEL [Suspect]
     Active Substance: DOCETAXEL
     Indication: HER2 positive breast cancer
     Dosage: DOSE LAST STUDY DRUG ADMIN PRIOR AE 141.75 MG?DOSE LAST STUDY DRUG ADMIN PRIOR SAE 1200 MG?START DAT
     Route: 042
     Dates: start: 20220727
  3. CARBOPLATIN [Suspect]
     Active Substance: CARBOPLATIN
     Indication: HER2 positive breast cancer
     Dosage: DOSE LAST STUDY DRUG ADMIN PRIOR AE 910 MG?START DATE OF MOST RECENT DOSE OF STUDY DRUG PRIOR TO AE:
     Route: 042
     Dates: start: 20220727
  4. OMEPRAZOLE [Concomitant]
     Active Substance: OMEPRAZOLE
     Indication: Prophylaxis
     Route: 042
     Dates: start: 20220805, end: 20220805
  5. LOPERAMIDE [Concomitant]
     Active Substance: LOPERAMIDE
     Indication: Diarrhoea
     Route: 048
     Dates: start: 20220805, end: 20220805
  6. DEXAMETHASONE [Concomitant]
     Active Substance: DEXAMETHASONE
     Route: 042
     Dates: start: 20220914, end: 20220914
  7. DEXAMETHASONE [Concomitant]
     Active Substance: DEXAMETHASONE
     Route: 042
     Dates: start: 20221005, end: 20221005
  8. FOSAPREPITANT [Concomitant]
     Active Substance: FOSAPREPITANT
     Route: 042
     Dates: start: 20220914, end: 20220914
  9. FOSAPREPITANT [Concomitant]
     Active Substance: FOSAPREPITANT
     Route: 042
     Dates: start: 20221005, end: 20221005
  10. OMEPRAZOLE [Concomitant]
     Active Substance: OMEPRAZOLE
     Route: 042
     Dates: start: 20220914, end: 20220914
  11. OMEPRAZOLE [Concomitant]
     Active Substance: OMEPRAZOLE
     Route: 042
     Dates: start: 20221005, end: 20221005
  12. PALONOSETRON [Concomitant]
     Active Substance: PALONOSETRON
     Route: 042
     Dates: start: 20221005, end: 20221005
  13. PALONOSETRON [Concomitant]
     Active Substance: PALONOSETRON
     Route: 042
     Dates: start: 20220914, end: 20220914

REACTIONS (6)
  - Febrile neutropenia [Not Recovered/Not Resolved]
  - Hypoxia [Not Recovered/Not Resolved]
  - Neutropenia [Recovered/Resolved]
  - Pyrexia [Recovered/Resolved]
  - Oxygen saturation decreased [Recovered/Resolved]
  - Diarrhoea [Recovered/Resolved]

NARRATIVE: CASE EVENT DATE: 20220727
